FAERS Safety Report 25866519 (Version 3)
Quarter: 2025Q4

REPORT INFORMATION
  Report Type: Spontaneous
  Country: US (occurrence: US)
  Receive Date: 20250930
  Receipt Date: 20251016
  Transmission Date: 20260118
  Serious: Yes (Other)
  Sender: BIOMARIN
  Company Number: US-BIOMARINAP-US-2025-169111

PATIENT
  Age: 9 Month
  Sex: Female
  Weight: 4 kg

DRUGS (1)
  1. VOXZOGO [Suspect]
     Active Substance: VOSORITIDE
     Indication: Osteochondrodysplasia
     Dosage: UNK, QD
     Dates: start: 202505

REACTIONS (1)
  - Weight gain poor [Unknown]
